FAERS Safety Report 4831389-7 (Version None)
Quarter: 2005Q4

REPORT INFORMATION
  Report Type: 
  Country: None (occurrence: None)
  Receive Date: 20051118
  Receipt Date: 20051026
  Transmission Date: 20060501
  Serious: Yes (Hospitalization)
  Sender: FDA-Public Use
  Company Number: JP-JPN-A20052572

PATIENT
  Age: 78 Year
  Sex: Male
  Weight: 50 kg

DRUGS (9)
  1. VALTREX [Suspect]
     Indication: HERPES ZOSTER
     Dosage: 1000MG PER DAY
     Route: 048
     Dates: start: 20050719, end: 20050721
  2. PRECIPITATED CALCIUM CARBONATE [Concomitant]
     Indication: RENAL FAILURE
     Dosage: .67G THREE TIMES PER DAY
     Route: 048
  3. ARTIST [Concomitant]
     Indication: RENAL FAILURE
     Dosage: 1TAB PER DAY
     Route: 048
  4. ALFAROL [Concomitant]
     Indication: RENAL FAILURE
     Dosage: 1CAP PER DAY
     Route: 048
  5. DIOVAN [Concomitant]
     Indication: RENAL FAILURE
     Dosage: 1TAB TWICE PER DAY
     Route: 048
  6. ARASENA-A [Concomitant]
     Indication: HERPES ZOSTER
     Route: 061
     Dates: start: 20050718, end: 20050718
  7. ZOVIRAX [Concomitant]
     Indication: HERPES ZOSTER
     Dosage: 1000MG PER DAY
     Route: 048
     Dates: start: 20050718, end: 20050718
  8. CYANOCOBALAMIN [Concomitant]
     Indication: HERPES ZOSTER
     Dosage: 500MCG THREE TIMES PER DAY
     Route: 048
     Dates: start: 20050719, end: 20050721
  9. ACTOSIN [Concomitant]
     Indication: HERPES ZOSTER
     Dosage: 5G PER DAY
     Route: 061
     Dates: start: 20050719, end: 20050725

REACTIONS (5)
  - ABASIA [None]
  - DIZZINESS [None]
  - DYSARTHRIA [None]
  - INCOHERENT [None]
  - NERVOUS SYSTEM DISORDER [None]
